FAERS Safety Report 7943169-4 (Version None)
Quarter: 2011Q4

REPORT INFORMATION
  Report Type: 
  Country: None (occurrence: None)
  Receive Date: 20111128
  Receipt Date: 20111116
  Transmission Date: 20120403
  Serious: Yes (Hospitalization)
  Sender: FDA-Public Use
  Company Number: PHHY2009JP04225

PATIENT
  Age: 39 Year
  Sex: Male

DRUGS (6)
  1. LIVACT [Concomitant]
     Route: 048
  2. URSO 250 [Concomitant]
     Route: 048
  3. NEORAL [Suspect]
     Indication: PSORIASIS
     Dosage: 175 MG, QD
     Route: 048
     Dates: end: 20080401
  4. CYCLOSPORINE [Suspect]
     Indication: PSORIASIS
     Dosage: 3 MG/KG/DAY
     Dates: start: 20030101
  5. CYCLOSPORINE [Suspect]
     Dosage: 175 MG, UNK
     Route: 048
     Dates: end: 20080401
  6. TIGASON [Concomitant]
     Dosage: 0.5 MG/KG, QD
     Dates: start: 20080401

REACTIONS (5)
  - SKIN PAPILLOMA [None]
  - ACANTHOSIS [None]
  - PAPILLOMA [None]
  - HYPERKERATOSIS [None]
  - SKIN LESION [None]
